FAERS Safety Report 24364223 (Version 2)
Quarter: 2024Q4

REPORT INFORMATION
  Report Type: Spontaneous
  Country: FR (occurrence: FR)
  Receive Date: 20240925
  Receipt Date: 20241016
  Transmission Date: 20250114
  Serious: Yes (Hospitalization, Other)
  Sender: JOHNSON AND JOHNSON
  Company Number: None

PATIENT
  Age: 81 Year
  Sex: Female
  Weight: 44 kg

DRUGS (13)
  1. STELARA [Suspect]
     Active Substance: USTEKINUMAB
     Indication: Crohn^s disease
     Dosage: 90 MG TOUTES LES 8 SEMAINES
     Route: 058
     Dates: start: 20240215, end: 20240808
  2. STELARA [Suspect]
     Active Substance: USTEKINUMAB
  3. CHOLESTYRAMINE [Concomitant]
     Active Substance: CHOLESTYRAMINE
  4. CHOLESTYRAMINE [Concomitant]
     Active Substance: CHOLESTYRAMINE
     Route: 048
  5. POTASSIUM CHLORIDE [Concomitant]
     Active Substance: POTASSIUM CHLORIDE
  6. CLAFORAN [Concomitant]
     Active Substance: CEFOTAXIME SODIUM
  7. FLAGYL [Concomitant]
     Active Substance: METRONIDAZOLE\METRONIDAZOLE HYDROCHLORIDE
  8. LEVOFLOXACIN [Concomitant]
     Active Substance: LEVOFLOXACIN
  9. MORPHINE [Concomitant]
     Active Substance: MORPHINE
  10. FOLIC ACID [Concomitant]
     Active Substance: FOLIC ACID
  11. CLINUTREN DESSERT GOURMAND [Concomitant]
  12. CHOLECALCIFEROL [Concomitant]
     Active Substance: CHOLECALCIFEROL
     Dosage: 1 AMPOULE, AT THE END OF THE LUNCH, ONCE A MONTH ORAL ROUTE, FOR 6 MONTHS
  13. MEDROL [Concomitant]
     Active Substance: METHYLPREDNISOLONE
     Dosage: 1 TABLET, MORNING, ORAL, UNTIL 06/OCTOBER 2024 THEN 0.5 TABLET UNTIL 06/10/2024

REACTIONS (5)
  - Crohn^s disease [Recovering/Resolving]
  - Subdural haematoma [Recovering/Resolving]
  - Wrist fracture [Unknown]
  - Cholecystectomy [Unknown]
  - Fall [Unknown]

NARRATIVE: CASE EVENT DATE: 20240501
